FAERS Safety Report 7742973-5 (Version None)
Quarter: 2011Q3

REPORT INFORMATION
  Report Type: 
  Country: None (occurrence: None)
  Receive Date: 20110908
  Receipt Date: 20110908
  Transmission Date: 20111222
  Serious: Yes (Life-Threatening, Hospitalization)
  Sender: FDA-Public Use
  Company Number: None

PATIENT
  Sex: Female
  Weight: 63.5036 kg

DRUGS (1)
  1. ORAGEL [Suspect]
     Indication: APHTHOUS STOMATITIS
     Dosage: PUT ON CANKOR SORE ONCE MOUTH
     Route: 048
     Dates: start: 20110818

REACTIONS (7)
  - ASPHYXIA [None]
  - FEELING ABNORMAL [None]
  - DEPRESSED LEVEL OF CONSCIOUSNESS [None]
  - TACHYCARDIA [None]
  - FEAR [None]
  - METHAEMOGLOBINAEMIA [None]
  - DYSSTASIA [None]
